FAERS Safety Report 4691602-6 (Version None)
Quarter: 2005Q2

REPORT INFORMATION
  Report Type: 
  Country: None (occurrence: None)
  Receive Date: 20050608
  Receipt Date: 20040813
  Transmission Date: 20051028
  Serious: Yes (Other)
  Sender: FDA-Public Use
  Company Number: 347312

PATIENT
  Sex: Female
  Weight: 2.6 kg

DRUGS (2)
  1. ISOTRETINOIN [Suspect]
     Indication: MEDICATION ERROR
     Dosage: 60 MG ORAL
     Route: 048
     Dates: start: 20030818, end: 20030818
  2. METHADONE HCL [Concomitant]

REACTIONS (3)
  - LIVE BIRTH [None]
  - MEDICATION ERROR [None]
  - NO ADVERSE EFFECT [None]
